FAERS Safety Report 4687334-0 (Version None)
Quarter: 2005Q2

REPORT INFORMATION
  Report Type: 
  Country: None (occurrence: None)
  Receive Date: 20050608
  Receipt Date: 20050606
  Transmission Date: 20051028
  Serious: Yes (Other)
  Sender: FDA-Public Use
  Company Number: 004944

PATIENT
  Age: 64 Year
  Sex: Female

DRUGS (4)
  1. MEDROXYPROGESTERONE ACETATE [Suspect]
     Indication: MENOPAUSAL SYMPTOMS
     Dates: start: 19890101, end: 20010101
  2. PREMARIN [Suspect]
     Dates: start: 19890101, end: 20010101
  3. PROVERA [Suspect]
     Dates: start: 19890101, end: 20010101
  4. MEDROXYPROGESTERONE ACETATE [Suspect]
     Dates: start: 19890101, end: 20010101

REACTIONS (3)
  - BREAST CANCER [None]
  - OESTROGEN RECEPTOR ASSAY POSITIVE [None]
  - PROGESTERONE RECEPTOR ASSAY POSITIVE [None]
